FAERS Safety Report 23499204 (Version 1)
Quarter: 2024Q1

REPORT INFORMATION
  Report Type: Spontaneous
  Country: DE (occurrence: DE)
  Receive Date: 20240208
  Receipt Date: 20240208
  Transmission Date: 20240410
  Serious: Yes (Hospitalization, Other)
  Sender: FDA-Public Use
  Company Number: None

PATIENT

DRUGS (1)
  1. BUPROPION HYDROCHLORIDE [Suspect]
     Active Substance: BUPROPION HYDROCHLORIDE
     Indication: Product used for unknown indication
     Dosage: 150 MG
     Route: 048

REACTIONS (9)
  - Aggression [Recovered/Resolved]
  - Headache [Recovered/Resolved]
  - Depression [Recovered/Resolved]
  - Disturbance in attention [Recovered/Resolved]
  - Thinking abnormal [Recovered/Resolved]
  - Acidosis [Recovered/Resolved]
  - Migraine [Recovered/Resolved]
  - Hallucination [Recovered/Resolved]
  - Product substitution issue [Unknown]

NARRATIVE: CASE EVENT DATE: 20240101
